FAERS Safety Report 5026324-5 (Version None)
Quarter: 2006Q2

REPORT INFORMATION
  Report Type: 
  Country: None (occurrence: None)
  Receive Date: 20060426
  Receipt Date: 20060128
  Transmission Date: 20061013
  Serious: Yes (Other)
  Sender: FDA-Public Use
  Company Number: 2006015690

PATIENT
  Age: 52 Year
  Sex: Female
  Weight: 101.6057 kg

DRUGS (5)
  1. LYRICA [Suspect]
     Indication: SPINAL COLUMN STENOSIS
     Dosage: 150 MG (50 MG,3 IN 1 D),ORAL
     Route: 048
     Dates: start: 20051213
  2. BUSPAR [Concomitant]
  3. ATENOLOL [Concomitant]
  4. DYAZIDE [Concomitant]
  5. POTASSIUM (POTASSIUM) [Concomitant]

REACTIONS (1)
  - PAIN [None]
